FAERS Safety Report 4802389-8 (Version None)
Quarter: 2005Q4

REPORT INFORMATION
  Report Type: 
  Country: None (occurrence: None)
  Receive Date: 20051013
  Receipt Date: 20050930
  Transmission Date: 20060501
  Serious: Yes (Other)
  Sender: FDA-Public Use
  Company Number: 2005082896

PATIENT
  Age: 74 Year
  Sex: Male

DRUGS (4)
  1. LIPITOR [Suspect]
     Indication: HYPERLIPIDAEMIA
     Dosage: 10 MG (10 MG, 1 IN 1 D), ORAL
     Route: 048
     Dates: start: 20000829, end: 20050401
  2. GLUCOPHAGE [Suspect]
     Indication: DIABETES MELLITUS
     Dosage: ORAL
     Route: 048
     Dates: start: 19990301
  3. ACTOS [Concomitant]
  4. PRANDIN [Concomitant]

REACTIONS (30)
  - ARTERIAL INSUFFICIENCY [None]
  - ARTHRALGIA [None]
  - ASTHENIA [None]
  - BLOOD CHOLESTEROL INCREASED [None]
  - CHEST PAIN [None]
  - DIARRHOEA [None]
  - DIFFICULTY IN WALKING [None]
  - DYSSTASIA [None]
  - ESSENTIAL HYPERTENSION [None]
  - FALL [None]
  - GLYCOSYLATED HAEMOGLOBIN INCREASED [None]
  - GROIN PAIN [None]
  - HAEMOPTYSIS [None]
  - HEART RATE IRREGULAR [None]
  - INCISION SITE COMPLICATION [None]
  - INTERMITTENT CLAUDICATION [None]
  - LOW DENSITY LIPOPROTEIN INCREASED [None]
  - MALIGNANT MELANOMA [None]
  - MICROALBUMINURIA [None]
  - MOVEMENT DISORDER [None]
  - MUSCLE INJURY [None]
  - MUSCULAR WEAKNESS [None]
  - MYALGIA [None]
  - OBESITY [None]
  - PAIN IN EXTREMITY [None]
  - PARAESTHESIA [None]
  - PRODUCTIVE COUGH [None]
  - RHINORRHOEA [None]
  - SNORING [None]
  - TENDERNESS [None]
